FAERS Safety Report 23666624 (Version 1)
Quarter: 2024Q1

REPORT INFORMATION
  Report Type: Spontaneous
  Country: US (occurrence: US)
  Receive Date: 20240324
  Receipt Date: 20240324
  Transmission Date: 20240410
  Serious: No
  Sender: FDA-Public Use
  Company Number: US-ABBVIE-5683288

PATIENT
  Age: 22 Year
  Sex: Female
  Weight: 109 kg

DRUGS (7)
  1. LILETTA [Suspect]
     Active Substance: LEVONORGESTREL
     Indication: Product used for unknown indication
     Dosage: TIME INTERVAL: AS NECESSARY: STRENGTH: 52 MG
     Route: 015
     Dates: start: 20240213
  2. TYLENOL EXTRA STRENGTH [Concomitant]
     Active Substance: ACETAMINOPHEN
     Indication: Pain
     Dosage: TIME INTERVAL: AS NECESSARY: STRENGTH: 500 MG, 1 TABLET BY MOUTH EVERY 4 TO 6 HOURS AS NEEDED FOR...
     Route: 048
  3. COLACE [Concomitant]
     Active Substance: DOCUSATE SODIUM
     Indication: Product used for unknown indication
     Dosage: STRENGTH: 100 MG, 1 CAPSULE BY MOUTH.
     Route: 048
  4. PEPCID [Concomitant]
     Active Substance: FAMOTIDINE
     Indication: Product used for unknown indication
     Dosage: STRENGTH: 20 MG, 1 TABLET BY MOUTH EVERY 12 HOURS FOR 5 DAYS
     Route: 048
  5. LEXAPRO [Concomitant]
     Active Substance: ESCITALOPRAM OXALATE
     Indication: Product used for unknown indication
     Dosage: STRENGTH: 10 MG VIA MOUTH
     Route: 048
     Dates: start: 20231114
  6. FERROUS SULFATE [Concomitant]
     Active Substance: FERROUS SULFATE
     Indication: Product used for unknown indication
     Dosage: STRENGTH: 325 MG, 1 TABLET BY MOUTH IN MORNING AND EVENING WITH MEALS
     Route: 048
  7. MOTRIN [Concomitant]
     Active Substance: IBUPROFEN
     Indication: Pain
     Dosage: TIME INTERVAL: AS NECESSARY: STRENGTH: 800 MG, 1 TABLET BY MOUTH EVERY 6 TO 8 HOURS AS NEEDED FOR...
     Route: 048

REACTIONS (1)
  - Device expulsion [Unknown]

NARRATIVE: CASE EVENT DATE: 20240312
